FAERS Safety Report 4499938-9 (Version None)
Quarter: 2004Q4

REPORT INFORMATION
  Report Type: 
  Country: None (occurrence: None)
  Receive Date: 20041112
  Receipt Date: 20041014
  Transmission Date: 20050328
  Serious: Yes (Hospitalization)
  Sender: FDA-Public Use
  Company Number: AT-MERCK-0410AUT00065

PATIENT
  Sex: Female

DRUGS (10)
  1. VIOXX [Suspect]
     Indication: PAIN
     Route: 048
     Dates: start: 20030623, end: 20041001
  2. VIOXX [Suspect]
     Indication: DISCOMFORT
     Route: 048
     Dates: start: 20030623, end: 20041001
  3. MEFENAMIC ACID [Concomitant]
     Route: 065
  4. AMITRIPTYLINE HYDROCHLORIDE [Concomitant]
     Route: 065
  5. CANDESARTAN CILEXETIL [Concomitant]
     Route: 065
  6. LIOTRIX [Concomitant]
     Indication: HYPOTHYROIDISM
     Route: 065
  7. PAROXETINE [Concomitant]
     Route: 065
  8. ANALGESIC OR ANESTHETIC (UNSPECIFIED) [Concomitant]
     Indication: PAIN
     Route: 065
     Dates: start: 20040901, end: 20040903
  9. TRAMADOL HYDROCHLORIDE [Concomitant]
     Route: 065
  10. DICLOFENAC SODIUM AND ORPHENADRINE CITRATE [Concomitant]
     Indication: PAIN IN EXTREMITY
     Route: 065
     Dates: start: 20040823, end: 20040903

REACTIONS (8)
  - DYSPEPSIA [None]
  - FACIAL PALSY [None]
  - FATIGUE [None]
  - LOSS OF CONSCIOUSNESS [None]
  - MEMORY IMPAIRMENT [None]
  - SLUGGISHNESS [None]
  - SPEECH DISORDER [None]
  - TREMOR [None]
